FAERS Safety Report 9890528 (Version 1)
Quarter: 2014Q1

REPORT INFORMATION
  Report Type: Spontaneous
  Country: US (occurrence: None)
  Receive Date: 20140211
  Receipt Date: 20140211
  Transmission Date: 20141002
  Serious: Yes (Hospitalization)
  Sender: FDA-Public Use
  Company Number: None

PATIENT
  Age: 56 Year
  Sex: Male
  Weight: 77.3 kg

DRUGS (2)
  1. WARFARIN 5 MG [Suspect]
     Indication: HAEMORRHAGE INTRACRANIAL
     Route: 048
     Dates: end: 20111011
  2. FONDAPARINUX [Suspect]
     Indication: DEEP VEIN THROMBOSIS

REACTIONS (2)
  - International normalised ratio increased [None]
  - Haematoma evacuation [None]
